FAERS Safety Report 21271824 (Version 3)
Quarter: 2023Q1

REPORT INFORMATION
  Report Type: Spontaneous
  Country: JP (occurrence: JP)
  Receive Date: 20220830
  Receipt Date: 20230330
  Transmission Date: 20230418
  Serious: Yes (Life-Threatening, Hospitalization)
  Sender: FDA-Public Use
  Company Number: JP-ABBVIE-21K-087-4065731-00

PATIENT
  Age: 67 Year
  Sex: Male

DRUGS (9)
  1. RINVOQ [Suspect]
     Active Substance: UPADACITINIB
     Indication: Rheumatoid arthritis
     Route: 048
     Dates: start: 20210731, end: 20220822
  2. RINVOQ [Suspect]
     Active Substance: UPADACITINIB
     Indication: Rheumatoid arthritis
     Route: 048
     Dates: start: 20221115
  3. Hyundai loxoprofen sodium hydrate [Concomitant]
     Indication: Rheumatoid arthritis
     Dosage: TIME INTERVAL: 0.33333333 DAYS: 180 MILLIGRAM
     Route: 048
     Dates: start: 20200731, end: 20220326
  4. TOPIROXOSTAT [Suspect]
     Active Substance: TOPIROXOSTAT
     Indication: Gout
     Route: 048
  5. LAFAYETTE CARBOCISTEINE [Concomitant]
     Indication: Asthma
     Dosage: TIME INTERVAL: 0.33333333 DAYS: 1500 MILLIGRAM
     Route: 048
     Dates: start: 20211204, end: 20220416
  6. AMBROXOL HYDROCHLORIDE NICHIIKO [Concomitant]
     Indication: Asthma
     Dosage: 45 MILLIGRAM
     Route: 048
     Dates: start: 20210911, end: 20211113
  7. PREDONINE [Suspect]
     Active Substance: PREDNISOLONE
     Indication: Rheumatoid arthritis
     Dosage: 1 TO 2 TIMES/DAY
     Route: 048
     Dates: start: 20200807, end: 20220507
  8. REBAMIPIDE NS [Concomitant]
     Indication: Gastroenteritis radiation
     Route: 048
     Dates: start: 20200731, end: 20220326
  9. TACROLIMUS [Suspect]
     Active Substance: TACROLIMUS
     Indication: Rheumatoid arthritis
     Dosage: 1 MILLIGRAM, (PROGRAF)
     Route: 048
     Dates: start: 20211225, end: 20220716

REACTIONS (2)
  - Gastric cancer [Recovering/Resolving]
  - Herpes simplex [Unknown]

NARRATIVE: CASE EVENT DATE: 20210828
